FAERS Safety Report 6786145-X (Version None)
Quarter: 2010Q2

REPORT INFORMATION
  Report Type: 
  Country: None (occurrence: None)
  Receive Date: 20100623
  Receipt Date: 20100614
  Transmission Date: 20101027
  Serious: Yes (Hospitalization)
  Sender: FDA-Public Use
  Company Number: US-ASTRAZENECA-2010SE21226

PATIENT
  Sex: Female

DRUGS (4)
  1. CRESTOR [Suspect]
     Indication: BLOOD CHOLESTEROL INCREASED
     Route: 048
     Dates: start: 20100210
  2. CRESTOR [Suspect]
     Route: 048
  3. VANCOMYCIN HCL [Concomitant]
     Indication: CLOSTRIDIAL INFECTION
  4. VIT D [Concomitant]

REACTIONS (5)
  - ABASIA [None]
  - ARTHRALGIA [None]
  - CLOSTRIDIAL INFECTION [None]
  - DRUG DOSE OMISSION [None]
  - PAIN IN EXTREMITY [None]
